FAERS Safety Report 7415423-6 (Version None)
Quarter: 2011Q2

REPORT INFORMATION
  Report Type: 
  Country: None (occurrence: None)
  Receive Date: 20110414
  Receipt Date: 20110407
  Transmission Date: 20111010
  Serious: Yes (Other)
  Sender: FDA-Public Use
  Company Number: PHHY2011JP10997

PATIENT
  Age: 37 Year
  Sex: Male

DRUGS (10)
  1. SIMULECT [Suspect]
     Dosage: 20 MG, ONCE/SINGLE
     Dates: start: 20100611
  2. CELLCEPT [Suspect]
     Indication: RENAL TRANSPLANT
     Dosage: 1500 MG
     Dates: start: 20100604, end: 20100713
  3. GANCICLOVIR [Concomitant]
  4. CYCLOSPORINE [Suspect]
     Indication: RENAL TRANSPLANT
     Dosage: 500 MG DAILY
     Dates: start: 20100604, end: 20100713
  5. STEROIDS NOS [Concomitant]
  6. SIMULECT [Suspect]
     Indication: RENAL TRANSPLANT
     Dosage: 20 MG, ONCE/SINGLE
     Route: 041
     Dates: start: 20100607
  7. PREDNISOLONE [Concomitant]
     Indication: RENAL TRANSPLANT
  8. PLASMA [Concomitant]
  9. RITUXIMAB [Concomitant]
  10. IMMUNOGLOBULIN ANTI-HUMAN-LYMPHOCYTIC [Concomitant]

REACTIONS (7)
  - HAEMATURIA [None]
  - PYELOCALIECTASIS [None]
  - CYTOMEGALOVIRUS INFECTION [None]
  - OLIGURIA [None]
  - RENAL HAEMORRHAGE [None]
  - CYTOMEGALOVIRUS TEST POSITIVE [None]
  - URINE OUTPUT INCREASED [None]
